FAERS Safety Report 6745191-2 (Version None)
Quarter: 2010Q2

REPORT INFORMATION
  Report Type: 
  Country: None (occurrence: None)
  Receive Date: 20100528
  Receipt Date: 20100517
  Transmission Date: 20101027
  Serious: Yes (Other)
  Sender: FDA-Public Use
  Company Number: US-ASTRAZENECA-2006UW20951

PATIENT
  Age: 34 Year
  Sex: Female
  Weight: 76.7 kg

DRUGS (25)
  1. SEROQUEL [Suspect]
     Indication: BIPOLAR DISORDER
     Route: 048
     Dates: start: 20000101
  2. SEROQUEL [Suspect]
     Indication: DEPRESSION
     Route: 048
     Dates: start: 20000101
  3. SEROQUEL [Suspect]
     Dosage: 100 MG-300 MG
     Route: 048
     Dates: start: 20030628
  4. SEROQUEL [Suspect]
     Dosage: 100 MG-300 MG
     Route: 048
     Dates: start: 20030628
  5. RISPERDAL [Concomitant]
     Indication: AFFECTIVE DISORDER
     Route: 048
     Dates: start: 19990419
  6. ZYPREXA [Concomitant]
     Route: 048
     Dates: start: 20020201
  7. ORPHENADRINE CITRATE [Concomitant]
     Route: 048
     Dates: start: 20030129
  8. CYCLOBENZAPRINE [Concomitant]
     Route: 048
     Dates: start: 20030525
  9. CLINDAMYCIN [Concomitant]
     Dosage: 150 MG-300 MG
     Route: 048
     Dates: start: 20030621
  10. TIZANIDINE [Concomitant]
     Route: 048
     Dates: start: 20020906
  11. PROMETHAZINE [Concomitant]
     Route: 048
     Dates: start: 20030807
  12. TOPAMAX [Concomitant]
     Dosage: 25 MG-200 MG
     Route: 048
     Dates: start: 20011201
  13. NAPROSYN [Concomitant]
     Route: 048
     Dates: start: 20060525
  14. AMBIEN [Concomitant]
     Dosage: 5 MG-10 MG
     Route: 048
     Dates: start: 20001013
  15. VALIUM [Concomitant]
     Route: 048
     Dates: start: 20051207
  16. ATIVAN [Concomitant]
     Dosage: 0.5 MG-1 MG
     Route: 048
     Dates: start: 20040917
  17. HYDROCHLOROTHIAZIDE [Concomitant]
     Route: 048
     Dates: start: 20050121
  18. MINOCYCLINE HCL [Concomitant]
     Route: 048
     Dates: start: 20040305
  19. AMITRIPTYLINE [Concomitant]
     Dosage: 10 MG-75 MG
     Route: 048
     Dates: start: 20010629
  20. KLONOPIN [Concomitant]
     Dosage: 1 MG-2 MG
     Route: 048
     Dates: start: 20020125
  21. REMERON [Concomitant]
     Route: 048
     Dates: start: 19991021
  22. LAMICTAL [Concomitant]
     Route: 048
     Dates: start: 19990407
  23. SKELAXIN [Concomitant]
     Route: 048
     Dates: start: 19950414
  24. DEPAKOTE [Concomitant]
     Indication: BIPOLAR DISORDER
  25. CLONIDINE [Concomitant]
     Indication: HYPERTENSION

REACTIONS (3)
  - DIABETES MELLITUS [None]
  - HYPERGLYCAEMIA [None]
  - NEUROPATHY PERIPHERAL [None]
